FAERS Safety Report 16540837 (Version 1)
Quarter: 2019Q3

REPORT INFORMATION
  Report Type: Spontaneous
  Country: US (occurrence: US)
  Receive Date: 20190525
  Receipt Date: 20190525
  Transmission Date: 20191004
  Serious: No
  Sender: FDA-Public Use
  Company Number: None

PATIENT
  Age: 64 Year
  Sex: Female

DRUGS (1)
  1. OMEPRAZOLE CAP 10MG [Suspect]
     Active Substance: OMEPRAZOLE
     Dates: start: 201801

REACTIONS (1)
  - Emergency care [None]

NARRATIVE: CASE EVENT DATE: 20190216
